FAERS Safety Report 8927235 (Version 1)
Quarter: 2012Q4

REPORT INFORMATION
  Report Type: 
  Country: BR (occurrence: BR)
  Receive Date: 20121127
  Receipt Date: 20121127
  Transmission Date: 20130627
  Serious: Yes (Life-Threatening, Hospitalization, Other)
  Sender: FDA-Public Use
  Company Number: BR-ASTRAZENECA-2012SE89034

PATIENT
  Age: 295 Month
  Sex: Female
  Weight: 90 kg

DRUGS (4)
  1. SEROQUEL XRO [Suspect]
     Indication: DEPRESSION
     Route: 048
     Dates: start: 201208, end: 201211
  2. SEROQUEL XRO [Suspect]
     Indication: DEPRESSION
     Route: 048
     Dates: start: 201211
  3. CYMBALTA [Concomitant]
     Indication: DEPRESSION
     Route: 048
  4. RIVOTRIL [Concomitant]
     Indication: DEPRESSION
     Route: 048

REACTIONS (3)
  - Suicide attempt [Recovered/Resolved]
  - Pneumonia [Recovered/Resolved]
  - Incorrect dose administered [None]
